FAERS Safety Report 6663326-7 (Version None)
Quarter: 2010Q2

REPORT INFORMATION
  Report Type: 
  Country: None (occurrence: None)
  Receive Date: 20100401
  Receipt Date: 20100319
  Transmission Date: 20101027
  Serious: Yes (Death, Other)
  Sender: FDA-Public Use
  Company Number: DE-MEDIMMUNE-MEDI-0010685

PATIENT
  Sex: Male

DRUGS (8)
  1. SYNAGIS [Suspect]
     Dates: start: 20100203
  2. COLECALCIFEROL [Concomitant]
     Dates: start: 20090922
  3. PHYTOMENADIONE [Concomitant]
     Indication: PROPHYLAXIS
  4. URSODEOXYCHOLIC ACID [Concomitant]
     Route: 048
  5. HYDROCHLOROTHIAZIDE [Concomitant]
     Route: 048
  6. SPIRONOLACTONE [Concomitant]
     Route: 048
  7. MULTIBIONTA [Concomitant]
     Route: 048
  8. XYLOMETAZOLINE HYDROCHLORIDE [Concomitant]
     Route: 045

REACTIONS (4)
  - CARDIAC FAILURE [None]
  - MULTI-ORGAN FAILURE [None]
  - RESPIRATORY TRACT INFECTION [None]
  - RESPIRATORY TRACT INFECTION VIRAL [None]
